FAERS Safety Report 15546145 (Version 1)
Quarter: 2018Q4

REPORT INFORMATION
  Report Type: Spontaneous
  Country: DE (occurrence: DE)
  Receive Date: 20181024
  Receipt Date: 20181024
  Transmission Date: 20190205
  Serious: Yes (Hospitalization)
  Sender: FDA-Public Use
  Company Number: PHHY2018DE072816

PATIENT
  Sex: Female

DRUGS (1)
  1. CLINDAHEXAL [Suspect]
     Active Substance: CLINDAMYCIN HYDROCHLORIDE
     Indication: INFECTION
     Dosage: 1 DF, QD
     Route: 048
     Dates: start: 20180806

REACTIONS (11)
  - Pharyngeal oedema [Recovered/Resolved]
  - Tachycardia [Unknown]
  - Panic attack [Unknown]
  - Restlessness [Unknown]
  - Anxiety [Unknown]
  - Dyspnoea [Recovered/Resolved]
  - Erythema [Unknown]
  - Nausea [Unknown]
  - Hyperventilation [Unknown]
  - Dysphagia [Recovered/Resolved]
  - Anaphylactic shock [Unknown]

NARRATIVE: CASE EVENT DATE: 20180806
